FAERS Safety Report 20634461 (Version 2)
Quarter: 2022Q2

REPORT INFORMATION
  Report Type: Spontaneous
  Country: CA (occurrence: CA)
  Receive Date: 20220325
  Receipt Date: 20220402
  Transmission Date: 20220721
  Serious: Yes (Hospitalization, Other)
  Sender: FDA-Public Use
  Company Number: CA-CELLTRION INC.-2021CA018312

PATIENT

DRUGS (4)
  1. INFLECTRA [Suspect]
     Active Substance: INFLIXIMAB-DYYB
     Indication: Colitis ulcerative
     Dosage: 10 MG/KG (800MG), INDUCTION AT Q 0 ,2 , 6 WEEK THEN EVERY 8 WEEKS
     Route: 042
     Dates: start: 20211124
  2. INFLECTRA [Suspect]
     Active Substance: INFLIXIMAB-DYYB
     Dosage: 800 MG,  INDUCTION AT Q 0 ,2 , 6 WEEK THEN EVERY 8 WEEKS
     Route: 042
     Dates: start: 20211215
  3. INFLECTRA [Suspect]
     Active Substance: INFLIXIMAB-DYYB
     Dosage: 800 MG,  INDUCTION AT Q 0 ,2 , 6 WEEK THEN EVERY 8 WEEKS
     Route: 042
     Dates: start: 20220112
  4. INFLECTRA [Suspect]
     Active Substance: INFLIXIMAB-DYYB
     Dosage: 800 MG,  INDUCTION AT Q 0 ,2 , 6 WEEK THEN EVERY 8 WEEKS
     Route: 042
     Dates: start: 20220315

REACTIONS (7)
  - Haematochezia [Unknown]
  - Dizziness [Unknown]
  - Nausea [Unknown]
  - Crohn^s disease [Unknown]
  - Off label use [Unknown]
  - Off label use [Unknown]
  - Weight increased [Unknown]

NARRATIVE: CASE EVENT DATE: 20220112
